FAERS Safety Report 9232393 (Version 2)
Quarter: 2013Q3

REPORT INFORMATION
  Report Type: Spontaneous
  Country: US (occurrence: US)
  Receive Date: 20130416
  Receipt Date: 20130823
  Transmission Date: 20140515
  Serious: No
  Sender: FDA-Public Use
  Company Number: US-BIOGENIDEC-2013BI031637

PATIENT
  Sex: Male

DRUGS (2)
  1. TYSABRI [Suspect]
     Indication: MULTIPLE SCLEROSIS
     Route: 042
     Dates: start: 20120305, end: 20120828
  2. TYSABRI [Suspect]
     Indication: MULTIPLE SCLEROSIS
     Route: 042
     Dates: start: 20130809

REACTIONS (5)
  - Hypoaesthesia [Recovered/Resolved]
  - Balance disorder [Recovered/Resolved]
  - Central nervous system lesion [Not Recovered/Not Resolved]
  - Tremor [Unknown]
  - Dizziness [Recovered/Resolved]
